FAERS Safety Report 4310912-5 (Version None)
Quarter: 2004Q1

REPORT INFORMATION
  Report Type: 
  Country: None (occurrence: None)
  Receive Date: 20040303
  Receipt Date: 20040218
  Transmission Date: 20041129
  Serious: Yes (Other)
  Sender: FDA-Public Use
  Company Number: 2004011472

PATIENT
  Age: 61 Year
  Sex: Male
  Weight: 60.782 kg

DRUGS (13)
  1. NEOSPORIN [Suspect]
     Indication: HERPES ZOSTER
     Dosage: SMALL AMOUNT QD, TOPICAL
     Route: 061
     Dates: start: 20040215, end: 20040217
  2. CAPSAICIN (CAPSAICIN) [Suspect]
     Indication: HERPES ZOSTER
     Dosage: ONCE, TOPICAL
     Route: 061
     Dates: start: 20040215, end: 20040215
  3. QUININE (QUININE) [Concomitant]
  4. MULTIVITAMIN [Concomitant]
  5. THIAMINE HCL [Concomitant]
  6. NORFLOXACIN [Concomitant]
  7. MIDODRINE (MIDODRINE) [Concomitant]
  8. FUROSEMIDE [Concomitant]
  9. TAMSULOSIN HYDROCHLORIDE (TAMSULOSIN HYDROCHLORIDE) [Concomitant]
  10. AMILORIDE (AMILORIDE) [Concomitant]
  11. TESTOSTERONE [Concomitant]
  12. PANTOPRAZOLE (PANTOPRAZOLE) [Concomitant]
  13. FOLIC ACID [Concomitant]

REACTIONS (2)
  - BLINDNESS [None]
  - RETINAL DETACHMENT [None]
